FAERS Safety Report 8344175-0 (Version None)
Quarter: 2012Q2

REPORT INFORMATION
  Report Type: 
  Country: None (occurrence: None)
  Receive Date: 20120508
  Receipt Date: 20111104
  Transmission Date: 20120825
  Serious: Yes (Hospitalization)
  Sender: FDA-Public Use
  Company Number: US-BAYER-2011-034681

PATIENT
  Age: 35 Year
  Sex: Female
  Weight: 107.3 kg

DRUGS (4)
  1. ACETAMINOPHEN [Concomitant]
     Indication: HEADACHE
  2. NAPROXEN [Concomitant]
     Dosage: 500 MG, UNK
     Dates: start: 20070910
  3. ANALPRAM-HC [Concomitant]
     Dosage: 2.5 %, UNK
     Route: 003
     Dates: start: 20070910
  4. YAZ [Suspect]
     Indication: ACNE
     Dosage: UNK
     Dates: start: 20070301, end: 20071001

REACTIONS (3)
  - PAIN [None]
  - CEREBROVASCULAR ACCIDENT [None]
  - INJURY [None]
